FAERS Safety Report 8387229-5 (Version None)
Quarter: 2012Q2

REPORT INFORMATION
  Report Type: 
  Country: None (occurrence: None)
  Receive Date: 20120525
  Receipt Date: 20120507
  Transmission Date: 20120825
  Serious: No
  Sender: FDA-Public Use
  Company Number: US-BAYER-2012-044720

PATIENT
  Age: 62 Year
  Sex: Male

DRUGS (1)
  1. STAXYN [Suspect]
     Indication: SUBSTANCE USE
     Dosage: 10 MG, UNK
     Dates: start: 20120414, end: 20120424

REACTIONS (1)
  - SUBSTANCE USE [None]
